FAERS Safety Report 5418241-3 (Version None)
Quarter: 2007Q3

REPORT INFORMATION
  Report Type: 
  Country: None (occurrence: None)
  Receive Date: 20070817
  Receipt Date: 20070815
  Transmission Date: 20080115
  Serious: Yes (Other)
  Sender: FDA-Public Use
  Company Number: A0659970A

PATIENT
  Age: 45 Year
  Sex: Male

DRUGS (5)
  1. LAMICTAL [Suspect]
     Indication: BIPOLAR DISORDER
     Dosage: 200MG PER DAY
     Route: 048
     Dates: start: 20030101
  2. DEPAKOTE ER [Concomitant]
  3. PROPRANOLOL [Concomitant]
     Indication: TARDIVE DYSKINESIA
     Dosage: 10MG THREE TIMES PER DAY
  4. ROZEREM [Concomitant]
     Indication: SLEEP DISORDER
  5. RISPERDAL [Concomitant]

REACTIONS (7)
  - BLOOD CHOLESTEROL INCREASED [None]
  - BLOOD TRIGLYCERIDES INCREASED [None]
  - HYPOTHYROIDISM [None]
  - LETHARGY [None]
  - RASH [None]
  - RASH ERYTHEMATOUS [None]
  - TREMOR [None]
